FAERS Safety Report 9804698 (Version 1)
Quarter: 2014Q1

REPORT INFORMATION
  Report Type: Spontaneous
  Country: US (occurrence: US)
  Receive Date: 20140108
  Receipt Date: 20140108
  Transmission Date: 20141002
  Serious: No
  Sender: FDA-Public Use
  Company Number: US-009507513-1401USA002676

PATIENT
  Age: 31 Year
  Sex: Female

DRUGS (3)
  1. CLARITIN-D-12 [Suspect]
     Indication: NASOPHARYNGITIS
     Dosage: UNK, UNKNOWN
     Route: 048
  2. CLARITIN-D-12 [Suspect]
     Indication: RESPIRATORY TRACT CONGESTION
  3. CLARITIN-D-12 [Suspect]
     Indication: DYSPNOEA

REACTIONS (3)
  - Pain [Unknown]
  - Unevaluable event [Unknown]
  - Therapeutic response unexpected [Unknown]
